FAERS Safety Report 17428903 (Version 2)
Quarter: 2020Q2

REPORT INFORMATION
  Report Type: Spontaneous
  Country: GB (occurrence: GB)
  Receive Date: 20200218
  Receipt Date: 20200512
  Transmission Date: 20200713
  Serious: Yes (Life-Threatening, Hospitalization)
  Sender: FDA-Public Use
  Company Number: NVSC2020GB043436

PATIENT
  Age: 13 Year
  Sex: Male

DRUGS (2)
  1. TRANEXAMIC ACID. [Concomitant]
     Active Substance: TRANEXAMIC ACID
     Indication: PRODUCT USED FOR UNKNOWN INDICATION
     Dosage: 1 G
     Route: 065
  2. CARBAMAZEPINE. [Suspect]
     Active Substance: CARBAMAZEPINE
     Indication: PARTIAL SEIZURES
     Dosage: 300 MG, BID
     Route: 065

REACTIONS (12)
  - Metabolic acidosis [Unknown]
  - Arthralgia [Unknown]
  - Abdominal pain [Unknown]
  - Haemoglobin decreased [Recovered/Resolved]
  - Pelvic haematoma [Recovering/Resolving]
  - Acute kidney injury [Unknown]
  - Gait inability [Unknown]
  - Generalised tonic-clonic seizure [Recovered/Resolved]
  - Acetabulum fracture [Recovered/Resolved]
  - Drug ineffective [Unknown]
  - Haemodynamic instability [Recovered/Resolved]
  - Sinus tachycardia [Unknown]
